FAERS Safety Report 4687491-6 (Version None)
Quarter: 2005Q2

REPORT INFORMATION
  Report Type: 
  Country: None (occurrence: None)
  Receive Date: 20050608
  Receipt Date: 20050608
  Transmission Date: 20051028
  Serious: Yes (Hospitalization)
  Sender: FDA-Public Use
  Company Number: None

PATIENT
  Age: 83 Year
  Sex: Female
  Weight: 48.9885 kg

DRUGS (1)
  1. AZTREONAM [Suspect]
     Indication: UROSEPSIS
     Dosage: 1 GRAM     Q 8 HOURS     INTRAVENOU
     Route: 042
     Dates: start: 20050605, end: 20050605

REACTIONS (3)
  - BURNING SENSATION [None]
  - ERYTHEMA [None]
  - PRURITUS [None]
